FAERS Safety Report 8252226-7 (Version None)
Quarter: 2012Q2

REPORT INFORMATION
  Report Type: 
  Country: None (occurrence: None)
  Receive Date: 20120402
  Receipt Date: 20110913
  Transmission Date: 20120825
  Serious: No
  Sender: FDA-Public Use
  Company Number: US-ABBOTT-11P-163-0854648-00

PATIENT
  Age: 50 Year
  Sex: Female
  Weight: 68.1 kg

DRUGS (6)
  1. ANDROGEL [Suspect]
     Indication: LIBIDO DISORDER
  2. ANDROGEL [Suspect]
     Indication: HYSTERECTOMY
     Dosage: 1 PUMP, DAILY
     Route: 061
  3. LISINOPRIL [Concomitant]
     Indication: HYPERTENSION
  4. ESTRATEST [Concomitant]
     Indication: HORMONE REPLACEMENT THERAPY
  5. PERCOCET [Concomitant]
     Indication: INTERVERTEBRAL DISC DEGENERATION
  6. PERCOCET [Concomitant]
     Indication: INTERVERTEBRAL DISC PROTRUSION

REACTIONS (4)
  - LOSS OF LIBIDO [None]
  - WEIGHT INCREASED [None]
  - ASTHENIA [None]
  - FEELING ABNORMAL [None]
